FAERS Safety Report 23448118 (Version 1)
Quarter: 2024Q1

REPORT INFORMATION
  Report Type: Spontaneous
  Country: US (occurrence: US)
  Receive Date: 20240126
  Receipt Date: 20240126
  Transmission Date: 20240409
  Serious: Yes (Other)
  Sender: FDA-Public Use
  Company Number: US-BRISTOL-MYERS SQUIBB COMPANY-2024-013425

PATIENT
  Age: 75 Year
  Sex: Female
  Weight: 67.13 kg

DRUGS (1)
  1. REVLIMID [Suspect]
     Active Substance: LENALIDOMIDE
     Indication: Mantle cell lymphoma
     Dosage: FREQUENCY: 3WKS ON, 1WK OFF
     Route: 048

REACTIONS (2)
  - Vulval disorder [Recovering/Resolving]
  - Lymphadenopathy [Recovering/Resolving]
